FAERS Safety Report 10436903 (Version 2)
Quarter: 2014Q3

REPORT INFORMATION
  Report Type: Spontaneous
  Country: CN (occurrence: CN)
  Receive Date: 20140908
  Receipt Date: 20140912
  Transmission Date: 20150326
  Serious: Yes (Hospitalization)
  Sender: FDA-Public Use
  Company Number: CN-PFIZER INC-2014247517

PATIENT
  Age: 81 Year
  Sex: Male
  Weight: 49 kg

DRUGS (2)
  1. MS CONTIN [Suspect]
     Active Substance: MORPHINE SULFATE
     Indication: CANCER PAIN
     Dosage: 30 MG, DAILY
     Route: 048
     Dates: start: 20130702, end: 20130702
  2. MS CONTIN [Suspect]
     Active Substance: MORPHINE SULFATE
     Indication: POSTOPERATIVE CARE

REACTIONS (4)
  - Loss of consciousness [Recovered/Resolved]
  - Urinary retention [Recovered/Resolved]
  - Lethargy [Recovering/Resolving]
  - Confusional state [Recovered/Resolved]

NARRATIVE: CASE EVENT DATE: 20130703
